FAERS Safety Report 11387921 (Version 1)
Quarter: 2015Q3

REPORT INFORMATION
  Report Type: Spontaneous
  Country: US (occurrence: US)
  Receive Date: 20150817
  Receipt Date: 20150817
  Transmission Date: 20151125
  Serious: Yes (Hospitalization)
  Sender: FDA-Public Use
  Company Number: US-SA-2015SA121117

PATIENT
  Sex: Male

DRUGS (1)
  1. SELSUN BLUE ITCHY DRY SCALP [Suspect]
     Active Substance: PYRITHIONE ZINC
     Route: 065
     Dates: start: 2013

REACTIONS (3)
  - Speech disorder [Unknown]
  - Product colour issue [Unknown]
  - Hospitalisation [Unknown]
